FAERS Safety Report 26179122 (Version 1)
Quarter: 2025Q4

REPORT INFORMATION
  Report Type: Spontaneous
  Country: GB (occurrence: GB)
  Receive Date: 20251219
  Receipt Date: 20251219
  Transmission Date: 20260118
  Serious: Yes (Other)
  Sender: RANBAXY
  Company Number: GB-MHRA-MIDB-14761272-630b-4dcd-a642-370fdf925cb7

PATIENT
  Age: 59 Year
  Sex: Male

DRUGS (14)
  1. WARFARIN [Suspect]
     Active Substance: WARFARIN
     Indication: Product used for unknown indication
     Dosage: UNK, *WARFARIN 1 MG TABLETS TAKE AS INSTRUCTED BY ANTICOAGULANT CLINIC - 5MG M/W/F AND6MG TUE,THU,SA
     Route: 065
  2. ALBUTEROL [Concomitant]
     Active Substance: ALBUTEROL
     Indication: Product used for unknown indication
     Dosage: UNK, USE AS DIRECTED WHENREQUIRED UPTO FOUR TIMES DAILY
     Route: 065
  3. ALBUTEROL [Concomitant]
     Active Substance: ALBUTEROL
     Indication: Product used for unknown indication
     Dosage: UNK, 100 MICROGRAMS / DOSE INHALER CFC FREE ONE OR TWO PUFFS TO BE INHALEDUP TO FOUR TIMES A DAY Y
     Route: 065
  4. METHADONE [Concomitant]
     Active Substance: METHADONE HYDROCHLORIDE
     Indication: Product used for unknown indication
     Dosage: UNK, ORAL SOLUTION, 20MG BD. - 40MLS ONCE DAILY, LAST SCRIPT STARTED YESTERDAY.PICKS UP THURSDAY 40M
     Route: 065
  5. NICOTINE [Concomitant]
     Active Substance: NICOTINE
     Indication: Product used for unknown indication
     Dosage: UNK, 21MG/24HRS PATCH
     Route: 065
  6. NICOTINE [Concomitant]
     Active Substance: NICOTINE
     Dosage: UNK, 15MG/DOSE INHALATOR, 1 PUFF PRN.
     Route: 065
  7. PREGABALIN [Concomitant]
     Active Substance: PREGABALIN
     Indication: Product used for unknown indication
     Dosage: UNK, 300 MG CAPSULES ONE TWICE A DAY Y
     Route: 065
  8. SPIRONOLACTONE [Concomitant]
     Active Substance: SPIRONOLACTONE
     Indication: Product used for unknown indication
     Dosage: 25 MILLIGRAM, 25 MG TABLETS ONE TO BE TAKEN EACH MORNING Y - SUSPENDED
     Route: 065
  9. FUROSEMIDE [Concomitant]
     Active Substance: FUROSEMIDE
     Indication: Product used for unknown indication
     Dosage: UNK, 40 MG TABLETS TWO TO BE TAKEN EACH MORNING AND ONE TO BE TAKEN ATLUNCHTIME Y - SUSPENDED, HYPOT
     Route: 065
  10. SIMVASTATIN [Concomitant]
     Active Substance: SIMVASTATIN
     Indication: Product used for unknown indication
     Dosage: UNK, 40 MG TABLETS ONE TO BE TAKEN AT NIGHT Y - SUSPENDED
     Route: 065
  11. BECLOMETHASONE DIPROPIONATE\FORMOTEROL FUMARATE\GLYCOPYRROLATE [Concomitant]
     Active Substance: BECLOMETHASONE DIPROPIONATE\FORMOTEROL FUMARATE\GLYCOPYRROLATE
     Indication: Product used for unknown indication
     Dosage: UNK, INHALE TWO PUFFS TWICE A DAY Y
     Route: 065
  12. BISOPROLOL [Concomitant]
     Active Substance: BISOPROLOL
     Indication: Product used for unknown indication
     Dosage: UNK, 1.25 MG TABLETS ONE TO BE TAKEN EVERY DAY Y OM
     Route: 065
  13. CARBOCYSTEINE [Concomitant]
     Active Substance: CARBOCYSTEINE
     Indication: Product used for unknown indication
     Dosage: UNK, 375 MG CAPSULES TWO TO BE TAKEN THREE TIMES A DAY Y
     Route: 065
  14. DAPAGLIFLOZIN [Concomitant]
     Active Substance: DAPAGLIFLOZIN
     Indication: Product used for unknown indication
     Dosage: UNK, 10 MG TABLETS ONE TO BE TAKEN IN THE MORNING - STOPPED PREVIOUSADMISSION
     Route: 065

REACTIONS (1)
  - Thrombosis [Unknown]
